FAERS Safety Report 25741577 (Version 1)
Quarter: 2025Q3

REPORT INFORMATION
  Report Type: Spontaneous
  Country: AU (occurrence: AU)
  Receive Date: 20250829
  Receipt Date: 20250829
  Transmission Date: 20251020
  Serious: Yes (Hospitalization, Other)
  Sender: INSUD PHARMA
  Company Number: AU-INSUD PHARMA-2508AU06978

PATIENT

DRUGS (1)
  1. TESTOSTERONE [Suspect]
     Active Substance: TESTOSTERONE
     Indication: Supplementation therapy
     Route: 030

REACTIONS (3)
  - Arrhythmic storm [Recovered/Resolved]
  - Drug monitoring procedure not performed [Unknown]
  - Product use issue [Unknown]
